FAERS Safety Report 6100537-3 (Version None)
Quarter: 2009Q1

REPORT INFORMATION
  Report Type: 
  Country: None (occurrence: None)
  Receive Date: 20090303
  Receipt Date: 20090218
  Transmission Date: 20090719
  Serious: Yes (Other)
  Sender: FDA-Public Use
  Company Number: RU-SANOFI-SYNTHELABO-A01200901704

PATIENT
  Sex: Female
  Weight: 85 kg

DRUGS (2)
  1. ATROVENT [Suspect]
     Indication: ASTHMA
     Dosage: UNK
     Route: 055
     Dates: start: 20090215, end: 20090215
  2. LOKREN [Suspect]
     Indication: HYPERTENSION
     Route: 048
     Dates: start: 20090215, end: 20090215

REACTIONS (3)
  - CONVULSION [None]
  - DIZZINESS [None]
  - HYPOTONIA [None]
